FAERS Safety Report 10821229 (Version 1)
Quarter: 2015Q1

REPORT INFORMATION
  Report Type: Report from Study
  Country: US (occurrence: None)
  Receive Date: 20150213
  Receipt Date: 20150213
  Transmission Date: 20150721
  Serious: Yes (Hospitalization, Other)
  Sender: FDA-Public Use
  Company Number: 2014BI110824

PATIENT
  Sex: Male
  Weight: 65.82 kg

DRUGS (4)
  1. TYSABRI [Suspect]
     Active Substance: NATALIZUMAB
     Indication: MULTIPLE SCLEROSIS
     Route: 042
     Dates: start: 20140828, end: 20140925
  2. CITALOPRAM [Concomitant]
     Active Substance: CITALOPRAM HYDROBROMIDE
  3. REBIF [Concomitant]
     Active Substance: INTERFERON BETA-1A
  4. VITAMIN D3 [Concomitant]
     Active Substance: CHOLECALCIFEROL

REACTIONS (14)
  - Fall [None]
  - Dysphagia [None]
  - Ataxia [None]
  - Blindness [None]
  - Fatigue [None]
  - Impaired work ability [None]
  - Abasia [None]
  - Immune reconstitution inflammatory syndrome [None]
  - Dysarthria [None]
  - Progressive multifocal leukoencephalopathy [None]
  - Ear infection [None]
  - General physical health deterioration [None]
  - Gait disturbance [None]
  - HIV infection [None]
